FAERS Safety Report 6295435-9 (Version None)
Quarter: 2009Q3

REPORT INFORMATION
  Report Type: 
  Country: None (occurrence: None)
  Receive Date: 20090730
  Receipt Date: 20090722
  Transmission Date: 20100115
  Serious: Yes (Other)
  Sender: FDA-Public Use
  Company Number: 8046173

PATIENT
  Sex: Female

DRUGS (1)
  1. KEPPRA [Suspect]
     Indication: EPILEPSY
     Dosage: 500 MG 2/D PO
     Route: 048
     Dates: start: 20081201, end: 20081221

REACTIONS (3)
  - DEPRESSED MOOD [None]
  - INTENTIONAL SELF-INJURY [None]
  - SUICIDAL IDEATION [None]
